FAERS Safety Report 8127236-0 (Version None)
Quarter: 2012Q1

REPORT INFORMATION
  Report Type: 
  Country: None (occurrence: None)
  Receive Date: 20120210
  Receipt Date: 20120208
  Transmission Date: 20120608
  Serious: Yes (Life-Threatening, Hospitalization)
  Sender: FDA-Public Use
  Company Number: DK-PFIZER INC-2012035202

PATIENT
  Age: 44 Year
  Sex: Female
  Weight: 60 kg

DRUGS (2)
  1. VARENICLINE TARTRATE [Suspect]
     Dosage: 1 MG, 2X/DAY
     Dates: start: 20110501, end: 20110701
  2. VARENICLINE TARTRATE [Suspect]
     Indication: SMOKING CESSATION THERAPY
     Dosage: 1 MG, 2X/DAY
     Route: 048
     Dates: start: 20100601, end: 20101101

REACTIONS (2)
  - ACUTE MYOCARDIAL INFARCTION [None]
  - SUPRAVENTRICULAR TACHYCARDIA [None]
